FAERS Safety Report 22000522 (Version 3)
Quarter: 2023Q2

REPORT INFORMATION
  Report Type: Spontaneous
  Country: US (occurrence: None)
  Receive Date: 20230216
  Receipt Date: 20230505
  Transmission Date: 20230721
  Serious: No
  Sender: FDA-Public Use
  Company Number: 2023A022225

PATIENT
  Age: 84 Year
  Sex: Female

DRUGS (1)
  1. BYDUREON BCISE [Suspect]
     Active Substance: EXENATIDE
     Indication: Diabetes mellitus
     Route: 058

REACTIONS (6)
  - Dementia [Unknown]
  - Arthralgia [Unknown]
  - Drug dose omission by device [Unknown]
  - Device issue [Unknown]
  - Device issue [Unknown]
  - Syringe issue [Unknown]
